FAERS Safety Report 7101539-0 (Version None)
Quarter: 2010Q4

REPORT INFORMATION
  Report Type: 
  Country: None (occurrence: None)
  Receive Date: 20101115
  Receipt Date: 20101109
  Transmission Date: 20110411
  Serious: Yes (Disabling, Other)
  Sender: FDA-Public Use
  Company Number: GR-PFIZER INC-2010143571

PATIENT
  Age: 43 Year
  Sex: Female

DRUGS (1)
  1. LYRICA [Suspect]
     Indication: BACK PAIN
     Dosage: 150 MG, 4X/DAY
     Route: 048
     Dates: start: 20100901, end: 20101105

REACTIONS (4)
  - BACK PAIN [None]
  - GAIT DISTURBANCE [None]
  - HYPONATRAEMIA [None]
  - MUSCULAR WEAKNESS [None]
